FAERS Safety Report 5056097-1 (Version None)
Quarter: 2006Q3

REPORT INFORMATION
  Report Type: 
  Country: None (occurrence: None)
  Receive Date: 20060714
  Receipt Date: 20060628
  Transmission Date: 20061208
  Serious: Yes (Other)
  Sender: FDA-Public Use
  Company Number: 2006001310

PATIENT
  Age: 70 Year
  Sex: Male

DRUGS (6)
  1. ERLOTINIB (TABLET) [Suspect]
     Dosage: 150 MG (QD), ORAL
     Route: 048
     Dates: start: 20060408, end: 20060429
  2. FRUMIL FORTE [Concomitant]
  3. DIGOXIN [Concomitant]
  4. ALDACTACINE (ALDACTAZINE) [Concomitant]
  5. CIMAL (CIMETIDINE) [Concomitant]
  6. TRAMADOL HCL [Concomitant]

REACTIONS (5)
  - ASTHENIA [None]
  - DIARRHOEA [None]
  - DISORIENTATION [None]
  - MENTAL DISORDER [None]
  - RESPIRATORY TRACT INFECTION [None]
